FAERS Safety Report 12455197 (Version 1)
Quarter: 2016Q2

REPORT INFORMATION
  Report Type: Spontaneous
  Country: US (occurrence: None)
  Receive Date: 20160609
  Receipt Date: 20160609
  Transmission Date: 20160815
  Serious: No
  Sender: FDA-Public Use
  Company Number: None

PATIENT

DRUGS (1)
  1. REVATIO [Suspect]
     Active Substance: SILDENAFIL CITRATE
     Dosage: SUSPENSION, ORAL 10 MG/ML BOTTLE, 112 ML FOLLOWING CONSTITUTION

REACTIONS (1)
  - Circumstance or information capable of leading to medication error [None]
